FAERS Safety Report 22083210 (Version 1)
Quarter: 2023Q1

REPORT INFORMATION
  Report Type: Spontaneous
  Country: BR (occurrence: BR)
  Receive Date: 20230310
  Receipt Date: 20230310
  Transmission Date: 20230417
  Serious: Yes (Other)
  Sender: FDA-Public Use
  Company Number: BR-SA-SAC20220728001480

PATIENT
  Age: 45 Year
  Sex: Female
  Weight: 86 kg

DRUGS (5)
  1. ENOXAPARIN SODIUM [Suspect]
     Active Substance: ENOXAPARIN SODIUM
     Indication: Pregnancy
     Dosage: QD
     Route: 030
     Dates: start: 202205
  2. ASPIRIN [Suspect]
     Active Substance: ASPIRIN
     Dosage: 1 DF, QD
  3. ASPIRIN [Concomitant]
     Active Substance: ASPIRIN
     Dosage: UNK
  4. RUBELLA VIRUS STRAIN WISTAR RA 27/3 LIVE ANTIGEN [Concomitant]
     Active Substance: RUBELLA VIRUS STRAIN WISTAR RA 27/3 LIVE ANTIGEN
     Indication: Immunisation
  5. OGESTAN [COLECALCIFEROL;DOCOSAHEXAENOIC ACID;FOLIC ACID;IODINE] [Concomitant]

REACTIONS (6)
  - Cytomegalovirus infection [Unknown]
  - Toxoplasmosis [Unknown]
  - Weight increased [Unknown]
  - Incorrect route of product administration [Unknown]
  - Maternal exposure during pregnancy [Unknown]
  - Product use in unapproved indication [Unknown]

NARRATIVE: CASE EVENT DATE: 20220501
